FAERS Safety Report 12777789 (Version 1)
Quarter: 2016Q3

REPORT INFORMATION
  Report Type: Spontaneous
  Country: US (occurrence: US)
  Receive Date: 20160924
  Receipt Date: 20160924
  Transmission Date: 20161109
  Serious: No
  Sender: FDA-Public Use
  Company Number: US-JAZZ-2016-US-010507

PATIENT
  Sex: Female

DRUGS (23)
  1. XYREM [Suspect]
     Active Substance: SODIUM OXYBATE
     Dosage: DOSE ADJUSTMENT
     Route: 048
     Dates: start: 200610, end: 200911
  2. XYREM [Suspect]
     Active Substance: SODIUM OXYBATE
     Dosage: 4.5 G, BID
     Route: 048
     Dates: start: 201511
  3. ALPRAZOLAM. [Concomitant]
     Active Substance: ALPRAZOLAM
  4. CYTOMEL [Concomitant]
     Active Substance: LIOTHYRONINE SODIUM
  5. LAMICTAL [Concomitant]
     Active Substance: LAMOTRIGINE
  6. XYREM [Suspect]
     Active Substance: SODIUM OXYBATE
     Dosage: 3.75 G, FIRST DOSE
     Route: 048
     Dates: start: 201103, end: 201106
  7. XYREM [Suspect]
     Active Substance: SODIUM OXYBATE
     Dosage: 1.75 G, SECOND DOSE
     Route: 048
     Dates: start: 201103, end: 201106
  8. METOPROLOL TARTRATE. [Concomitant]
     Active Substance: METOPROLOL TARTRATE
  9. CYCLOBENZAPRINE [Concomitant]
     Active Substance: CYCLOBENZAPRINE
  10. NATURE-THROID [Concomitant]
     Active Substance: THYROID, PORCINE
  11. XYREM [Suspect]
     Active Substance: SODIUM OXYBATE
     Indication: PRODUCT USED FOR UNKNOWN INDICATION
     Dosage: 2.5 G, BID
     Route: 048
     Dates: start: 200603, end: 200610
  12. XYREM [Suspect]
     Active Substance: SODIUM OXYBATE
     Dosage: 3.75 G, SECOND DOSE
     Route: 048
     Dates: start: 200911
  13. ZALEPLON. [Concomitant]
     Active Substance: ZALEPLON
  14. PROPRANOLOL [Concomitant]
     Active Substance: PROPRANOLOL\PROPRANOLOL HYDROCHLORIDE
  15. LEVOXYL [Concomitant]
     Active Substance: LEVOTHYROXINE SODIUM
  16. WELLBUTRIN XL [Concomitant]
     Active Substance: BUPROPION HYDROCHLORIDE
  17. TYLENOL EXTRA STRENGTH [Concomitant]
     Active Substance: ACETAMINOPHEN
  18. HYDROCHLOROTHIAZIDE. [Concomitant]
     Active Substance: HYDROCHLOROTHIAZIDE
  19. DOMPERIDONE [Concomitant]
     Active Substance: DOMPERIDONE
  20. XYREM [Suspect]
     Active Substance: SODIUM OXYBATE
     Dosage: 4 G, FIRST DOSE
     Route: 048
     Dates: start: 200911
  21. XYREM [Suspect]
     Active Substance: SODIUM OXYBATE
     Dosage: 3.75 G, BID
     Route: 048
     Dates: start: 201106, end: 2012
  22. PROVIGIL [Concomitant]
     Active Substance: MODAFINIL
  23. MAXALT [Concomitant]
     Active Substance: RIZATRIPTAN BENZOATE

REACTIONS (4)
  - Malaise [Unknown]
  - Nausea [Unknown]
  - Cough [Unknown]
  - Dyspnoea [Unknown]
